FAERS Safety Report 8567268-1 (Version None)
Quarter: 2012Q3

REPORT INFORMATION
  Report Type: 
  Country: None (occurrence: None)
  Receive Date: 20120803
  Receipt Date: 20120726
  Transmission Date: 20120928
  Serious: No
  Sender: FDA-Public Use
  Company Number: PHHY2012CA056212

PATIENT
  Sex: Female

DRUGS (1)
  1. GILENYA [Suspect]
     Indication: RELAPSING-REMITTING MULTIPLE SCLEROSIS
     Dosage: 0.5 MG, DAILY
     Route: 048
     Dates: start: 20120612

REACTIONS (6)
  - OROPHARYNGEAL PAIN [None]
  - PAIN [None]
  - HEADACHE [None]
  - SINUSITIS [None]
  - PRESYNCOPE [None]
  - DIZZINESS [None]
